FAERS Safety Report 7722492-2 (Version None)
Quarter: 2011Q3

REPORT INFORMATION
  Report Type: 
  Country: None (occurrence: None)
  Receive Date: 20110831
  Receipt Date: 20110826
  Transmission Date: 20111222
  Serious: Yes (Other)
  Sender: FDA-Public Use
  Company Number: GB-PFIZER INC-2011170910

PATIENT
  Age: 92 Year
  Sex: Female
  Weight: 59.2 kg

DRUGS (8)
  1. ANASTROZOLE [Concomitant]
  2. ATORVASTATIN [Concomitant]
  3. AMLODIPINE BESILATE [Suspect]
     Indication: HYPERTENSION
  4. ACETYLSALICYLIC ACID [Concomitant]
  5. FUROSEMIDE [Concomitant]
  6. AMLODIPINE [Concomitant]
  7. QUININE SULFATE [Concomitant]
  8. LANSOPRAZOLE [Concomitant]

REACTIONS (1)
  - BRADYCARDIA [None]
